FAERS Safety Report 7810373-5 (Version None)
Quarter: 2011Q4

REPORT INFORMATION
  Report Type: 
  Country: None (occurrence: None)
  Receive Date: 20111012
  Receipt Date: 20110926
  Transmission Date: 20120403
  Serious: Yes (Hospitalization)
  Sender: FDA-Public Use
  Company Number: FR-ROCHE-1000342

PATIENT
  Age: 75 Year
  Sex: Female

DRUGS (1)
  1. BONIVA [Suspect]
     Indication: OSTEOPOROSIS
     Route: 048

REACTIONS (6)
  - TOOTH ABSCESS [None]
  - TOOTHACHE [None]
  - WEIGHT DECREASED [None]
  - PYREXIA [None]
  - TOOTH DISORDER [None]
  - FEMORAL NECK FRACTURE [None]
